FAERS Safety Report 5259643-8 (Version None)
Quarter: 2007Q1

REPORT INFORMATION
  Report Type: 
  Country: None (occurrence: None)
  Receive Date: 20070307
  Receipt Date: 20070307
  Transmission Date: 20070707
  Serious: Yes (Life-Threatening, Hospitalization, Other)
  Sender: FDA-Public Use
  Company Number: None

PATIENT
  Age: 51 Year
  Sex: Male
  Weight: 123.4 kg

DRUGS (21)
  1. SIMVASTATIN [Suspect]
     Indication: HYPERLIPIDAEMIA
     Dosage: 80MG  DAILY  PO
     Route: 048
     Dates: start: 20060727, end: 20060914
  2. CYCLOSPORINE [Suspect]
     Indication: HEART TRANSPLANT
     Dosage: 210MG   TWICE DAILY  PO
     Route: 048
     Dates: start: 20060727
  3. CYCLOSPORINE [Suspect]
     Indication: IMMUNOSUPPRESSANT DRUG THERAPY
     Dosage: 210MG   TWICE DAILY  PO
     Route: 048
     Dates: start: 20060727
  4. CELLCEPT [Concomitant]
  5. DIPYRIDAMOLE [Concomitant]
  6. NEXIUM [Concomitant]
  7. PROZAC [Concomitant]
  8. FLOMAX [Concomitant]
  9. FERGON [Concomitant]
  10. CARVEDILOL [Concomitant]
  11. MULTI-VITAMIN [Concomitant]
  12. ASCORBIC ACID [Concomitant]
  13. OSCAL+D [Concomitant]
  14. CLOTRIMAZOLE TROCHE [Concomitant]
  15. VICODIN [Concomitant]
  16. MELATONIN [Concomitant]
  17. VALCYTE [Concomitant]
  18. BACTRIM [Concomitant]
  19. DILTIAZEM CD [Concomitant]
  20. PREDNISONE [Concomitant]
  21. MAGNESIUM OXIDE [Concomitant]

REACTIONS (1)
  - RHABDOMYOLYSIS [None]
